FAERS Safety Report 22097169 (Version 1)
Quarter: 2023Q1

REPORT INFORMATION
  Report Type: Spontaneous
  Country: JP (occurrence: JP)
  Receive Date: 20230315
  Receipt Date: 20230315
  Transmission Date: 20230418
  Serious: Yes (Other)
  Sender: FDA-Public Use
  Company Number: JP-TEVA-2023-JP-2866814

PATIENT
  Age: 8 Decade

DRUGS (1)
  1. AZILECT [Suspect]
     Active Substance: RASAGILINE MESYLATE
     Indication: Product used for unknown indication
     Dosage: .5 MILLIGRAM DAILY;
     Route: 065

REACTIONS (3)
  - Fall [Recovering/Resolving]
  - Blood pressure decreased [Unknown]
  - Depressed level of consciousness [Unknown]
